FAERS Safety Report 10010080 (Version 1)
Quarter: 2014Q1

REPORT INFORMATION
  Report Type: Spontaneous
  Country: US (occurrence: US)
  Receive Date: 20140312
  Receipt Date: 20140312
  Transmission Date: 20141002
  Serious: No
  Sender: FDA-Public Use
  Company Number: US-INCYTE CORPORATION-2013IN001049

PATIENT
  Sex: Male

DRUGS (2)
  1. JAKAFI [Suspect]
     Dosage: 5 MG, BID
     Route: 048
     Dates: start: 20130423, end: 20130522
  2. GLEEVEC [Concomitant]
     Dosage: 400 MG, UNK

REACTIONS (1)
  - Mouth ulceration [Unknown]
